FAERS Safety Report 10262408 (Version 3)
Quarter: 2015Q3

REPORT INFORMATION
  Report Type: Spontaneous
  Country: US (occurrence: US)
  Receive Date: 20140626
  Receipt Date: 20150817
  Transmission Date: 20151125
  Serious: No
  Sender: FDA-Public Use
  Company Number: US-GILEAD-2014-0106562

PATIENT
  Age: 69 Year
  Sex: Female

DRUGS (6)
  1. DOXAZOSIN [Concomitant]
     Active Substance: DOXAZOSIN\DOXAZOSIN MESYLATE
  2. CALCITRIOL. [Concomitant]
     Active Substance: CALCITRIOL
  3. LETAIRIS [Suspect]
     Active Substance: AMBRISENTAN
     Indication: COR PULMONALE CHRONIC
     Dosage: 5 MG, QD
     Route: 065
     Dates: start: 20140416, end: 20140615
  4. PANTOPRAZOLE [Concomitant]
     Active Substance: PANTOPRAZOLE SODIUM
  5. ZYLOPRIM [Concomitant]
     Active Substance: ALLOPURINOL
  6. ADCIRCA [Concomitant]
     Active Substance: TADALAFIL

REACTIONS (3)
  - Nasal congestion [Recovering/Resolving]
  - Pulmonary arterial pressure increased [Unknown]
  - Catheterisation cardiac [Unknown]
